FAERS Safety Report 5232802-6 (Version None)
Quarter: 2007Q1

REPORT INFORMATION
  Report Type: 
  Country: None (occurrence: None)
  Receive Date: 20070206
  Receipt Date: 20070206
  Transmission Date: 20070707
  Serious: Yes (Hospitalization)
  Sender: FDA-Public Use
  Company Number: None

PATIENT
  Age: 37 Year
  Sex: Male
  Weight: 81.3 kg

DRUGS (2)
  1. IBUPROFEN [Suspect]
     Indication: PAIN
     Dosage: 400-600MG  BID PO
     Route: 048
  2. NAPROXEN [Suspect]
     Indication: PAIN
     Dosage: 400MG  BID PO
     Route: 048

REACTIONS (9)
  - ASTHENIA [None]
  - DRUG ABUSER [None]
  - GRAND MAL CONVULSION [None]
  - NORMOCHROMIC NORMOCYTIC ANAEMIA [None]
  - POLLAKIURIA [None]
  - RED BLOOD CELLS URINE POSITIVE [None]
  - RENAL DISORDER [None]
  - RENAL FAILURE ACUTE [None]
  - TREATMENT NONCOMPLIANCE [None]
